FAERS Safety Report 17971355 (Version 1)
Quarter: 2020Q3

REPORT INFORMATION
  Report Type: Spontaneous
  Country: DE (occurrence: GB)
  Receive Date: 20200702
  Receipt Date: 20200702
  Transmission Date: 20201103
  Serious: Yes (Hospitalization)
  Sender: FDA-Public Use
  Company Number: DE-ALVOGEN-2020-ALVOGEN-108766

PATIENT
  Age: 58 Year
  Sex: Male

DRUGS (4)
  1. FOSFOMYCIN [Suspect]
     Active Substance: FOSFOMYCIN
     Indication: WOUND NECROSIS
  2. AMOXICILLIN/CLAVULANIC ACID [Suspect]
     Active Substance: AMOXICILLIN\CLAVULANIC ACID
     Indication: WOUND NECROSIS
  3. CEFUROXIME. [Suspect]
     Active Substance: CEFUROXIME
     Indication: WOUND NECROSIS
  4. CLINDAMYCIN. [Suspect]
     Active Substance: CLINDAMYCIN
     Indication: WOUND NECROSIS

REACTIONS (2)
  - Pyrexia [Unknown]
  - Inflammatory marker increased [Unknown]
